FAERS Safety Report 9529225 (Version 1)
Quarter: 2013Q3

REPORT INFORMATION
  Report Type: Spontaneous
  Country: US (occurrence: US)
  Receive Date: 20130917
  Receipt Date: 20130917
  Transmission Date: 20140515
  Serious: No
  Sender: FDA-Public Use
  Company Number: US-TEVA-432755USA

PATIENT
  Sex: Female
  Weight: 90.8 kg

DRUGS (5)
  1. PARAGARD 380A [Suspect]
     Indication: CONTRACEPTION
     Route: 015
     Dates: start: 20130117, end: 20130806
  2. COUMADIN [Concomitant]
     Indication: RENAL FAILURE CHRONIC
  3. ASPIRIN [Concomitant]
     Indication: RENAL FAILURE CHRONIC
  4. ZYRTEC [Concomitant]
     Indication: RENAL FAILURE CHRONIC
  5. MIDODRINE [Concomitant]
     Indication: RENAL FAILURE CHRONIC

REACTIONS (1)
  - Metrorrhagia [Not Recovered/Not Resolved]
